FAERS Safety Report 9692844 (Version 2)
Quarter: 2014Q1

REPORT INFORMATION
  Report Type: Spontaneous
  Country: US (occurrence: US)
  Receive Date: 20131118
  Receipt Date: 20140116
  Transmission Date: 20141002
  Serious: Yes (Other)
  Sender: FDA-Public Use
  Company Number: US-BAYER-2013-135980

PATIENT
  Age: 45 Year
  Sex: Female

DRUGS (7)
  1. MIRENA [Suspect]
     Dosage: 20 MCG/24HR, CONT
     Route: 015
     Dates: start: 20070402, end: 20120808
  2. ZYRTEC [Concomitant]
     Route: 048
  3. PROVERA [Concomitant]
  4. AMBIEN [Concomitant]
  5. LORAZEPAM [Concomitant]
  6. CELEXA [Concomitant]
  7. DOXYCYCLINE [Concomitant]

REACTIONS (6)
  - Device dislocation [None]
  - Pain [None]
  - Emotional distress [None]
  - Anhedonia [None]
  - Injury [None]
  - Device misuse [None]
